FAERS Safety Report 12385140 (Version 1)
Quarter: 2016Q2

REPORT INFORMATION
  Report Type: Spontaneous
  Country: US (occurrence: US)
  Receive Date: 20160519
  Receipt Date: 20160519
  Transmission Date: 20160815
  Serious: No
  Sender: FDA-Public Use
  Company Number: US-BAYER-2016-090846

PATIENT
  Age: 68 Year
  Sex: Male
  Weight: 76.19 kg

DRUGS (1)
  1. MIRALAX [Suspect]
     Active Substance: POLYETHYLENE GLYCOL 3350
     Indication: COLONOSCOPY
     Dosage: 1 DF, UNK

REACTIONS (3)
  - Circumstance or information capable of leading to medication error [None]
  - Off label use [None]
  - Product use issue [None]
